FAERS Safety Report 12610394 (Version 1)
Quarter: 2016Q3

REPORT INFORMATION
  Report Type: Spontaneous
  Country: US (occurrence: None)
  Receive Date: 20160729
  Receipt Date: 20160729
  Transmission Date: 20161109
  Serious: No
  Sender: FDA-Public Use
  Company Number: None

PATIENT

DRUGS (1)
  1. FENTANYL, 50 MCG/ML PHARMEDIUM [Suspect]
     Active Substance: FENTANYL
     Indication: PAIN MANAGEMENT
     Route: 042
     Dates: start: 20160725, end: 20160725

REACTIONS (1)
  - Product packaging confusion [None]

NARRATIVE: CASE EVENT DATE: 20160725
